FAERS Safety Report 6994647-6 (Version None)
Quarter: 2010Q3

REPORT INFORMATION
  Report Type: 
  Country: None (occurrence: None)
  Receive Date: 20100915
  Receipt Date: 20100915
  Transmission Date: 20110219
  Serious: Yes (Hospitalization)
  Sender: FDA-Public Use
  Company Number: None

PATIENT
  Age: 48 Year
  Sex: Female
  Weight: 58.9676 kg

DRUGS (1)
  1. FEMRING [Suspect]
     Indication: OESTROGEN REPLACEMENT THERAPY
     Dosage: I INSERT RING 3 MONTHS
     Route: 067
     Dates: start: 20100903, end: 20100909

REACTIONS (9)
  - ABDOMINAL DISTENSION [None]
  - CONSTIPATION [None]
  - CRYING [None]
  - DEVICE DIFFICULT TO USE [None]
  - DYSURIA [None]
  - HEADACHE [None]
  - NO THERAPEUTIC RESPONSE [None]
  - SUICIDAL IDEATION [None]
  - VAGINAL SWELLING [None]
